FAERS Safety Report 5199005-5 (Version None)
Quarter: 2007Q1

REPORT INFORMATION
  Report Type: 
  Country: None (occurrence: None)
  Receive Date: 20070104
  Receipt Date: 20061227
  Transmission Date: 20070707
  Serious: Yes (Death)
  Sender: FDA-Public Use
  Company Number: JP-BRISTOL-MYERS SQUIBB COMPANY-13604079

PATIENT
  Age: 77 Year
  Sex: Female

DRUGS (19)
  1. TAXOL [Suspect]
     Indication: UTERINE CANCER
     Route: 041
     Dates: start: 20060906, end: 20060906
  2. PARAPLATIN [Suspect]
     Indication: UTERINE CANCER
     Route: 041
     Dates: start: 20060906, end: 20060906
  3. DEXAMETHASONE [Concomitant]
  4. DIPHENHYDRAMINE HCL [Concomitant]
  5. ZANTAC [Concomitant]
  6. SEROTONE [Concomitant]
     Route: 041
     Dates: start: 20060705, end: 20060906
  7. HUMULIN 70/30 [Concomitant]
     Dates: start: 20060705, end: 20060906
  8. LIPITOR [Concomitant]
     Route: 048
  9. HALCION [Concomitant]
     Route: 048
  10. ISOSORBIDE MONONITRATE [Concomitant]
     Route: 048
  11. HERBESSER [Concomitant]
     Route: 048
  12. DAONIL [Concomitant]
     Route: 048
  13. CEROCRAL [Concomitant]
     Route: 048
  14. BASEN [Concomitant]
     Route: 048
  15. FERROMIA [Concomitant]
     Route: 048
  16. ASPIRIN [Concomitant]
     Route: 048
  17. PANALDINE [Concomitant]
     Route: 048
  18. ASPIRIN [Concomitant]
  19. PANALDINE [Concomitant]

REACTIONS (2)
  - GASTROINTESTINAL HAEMORRHAGE [None]
  - RENAL FAILURE ACUTE [None]
